FAERS Safety Report 8917217 (Version 1)
Quarter: 2012Q4

REPORT INFORMATION
  Report Type: 
  Country: FR (occurrence: GB)
  Receive Date: 20121120
  Receipt Date: 20121120
  Transmission Date: 20130627
  Serious: Yes (Hospitalization)
  Sender: FDA-Public Use
  Company Number: UK-MYLANLABS-2012S1023804

PATIENT
  Sex: Male

DRUGS (7)
  1. CYSTAGON CAPSULES [Suspect]
     Indication: CYSTINOSIS
     Route: 048
     Dates: start: 19981207
  2. CYSTAGON CAPSULES [Suspect]
     Indication: CYSTINOSIS
     Route: 048
  3. CYSTAGON CAPSULES [Suspect]
     Indication: CYSTINOSIS
     Route: 048
  4. INDOMETHACIN [Concomitant]
     Indication: GASTROSTOMY
  5. THYROXIN [Concomitant]
     Indication: GASTROSTOMY
  6. POLYCITRA-K /01439501/ [Concomitant]
     Indication: GASTROSTOMY
  7. 1-ALPHA-HYDROXYCHOLECALCIFEROL [Concomitant]
     Indication: GASTROSTOMY

REACTIONS (4)
  - Vomiting [Not Recovered/Not Resolved]
  - Pyrexia [Not Recovered/Not Resolved]
  - Hair colour changes [Not Recovered/Not Resolved]
  - Incorrect dose administered [Not Recovered/Not Resolved]
